FAERS Safety Report 24538302 (Version 3)
Quarter: 2024Q4

REPORT INFORMATION
  Report Type: Report from Study
  Country: CO (occurrence: CO)
  Receive Date: 20241023
  Receipt Date: 20241127
  Transmission Date: 20250115
  Serious: Yes (Disabling, Other)
  Sender: NOVARTIS
  Company Number: CO-002147023-NVSC2024CO088713

PATIENT
  Age: 47 Year
  Sex: Female
  Weight: 56 kg

DRUGS (6)
  1. KESIMPTA [Suspect]
     Active Substance: OFATUMUMAB
     Indication: Relapsing-remitting multiple sclerosis
     Dosage: 20 MG, QMO
     Route: 058
     Dates: start: 20230901, end: 202311
  2. KESIMPTA [Suspect]
     Active Substance: OFATUMUMAB
     Dosage: 20 MG, QMO
     Route: 058
  3. KESIMPTA [Suspect]
     Active Substance: OFATUMUMAB
     Dosage: UNK
     Route: 065
     Dates: start: 202406
  4. KESIMPTA [Suspect]
     Active Substance: OFATUMUMAB
     Dosage: 20 MG, QMO
     Route: 058
     Dates: start: 20240914
  5. VITAMIN D3 [Concomitant]
     Active Substance: CHOLECALCIFEROL
     Indication: Product used for unknown indication
     Dosage: UNK
     Route: 065
  6. PREGABALIN [Concomitant]
     Active Substance: PREGABALIN
     Indication: Product used for unknown indication
     Dosage: UNK
     Route: 065

REACTIONS (17)
  - Fatigue [Not Recovered/Not Resolved]
  - Hypoaesthesia [Not Recovered/Not Resolved]
  - Pain in extremity [Not Recovered/Not Resolved]
  - Balance disorder [Not Recovered/Not Resolved]
  - Movement disorder [Not Recovered/Not Resolved]
  - Malaise [Not Recovered/Not Resolved]
  - Progressive multiple sclerosis [Unknown]
  - Gait disturbance [Not Recovered/Not Resolved]
  - Underweight [Not Recovered/Not Resolved]
  - Pain [Not Recovered/Not Resolved]
  - Viral infection [Not Recovered/Not Resolved]
  - Gastroenteritis [Not Recovered/Not Resolved]
  - Headache [Not Recovered/Not Resolved]
  - Bone pain [Not Recovered/Not Resolved]
  - Chills [Not Recovered/Not Resolved]
  - Product supply issue [Unknown]
  - Weight increased [Unknown]

NARRATIVE: CASE EVENT DATE: 20230901
